FAERS Safety Report 5805670-9 (Version None)
Quarter: 2008Q3

REPORT INFORMATION
  Report Type: 
  Country: None (occurrence: None)
  Receive Date: 20080710
  Receipt Date: 20080516
  Transmission Date: 20090109
  Serious: No
  Sender: FDA-Public Use
  Company Number: A0728300A

PATIENT
  Age: 47 Year
  Sex: Female

DRUGS (2)
  1. TYKERB [Suspect]
     Indication: BREAST CANCER
     Dosage: 5CAPL PER DAY
     Route: 048
     Dates: start: 20080201
  2. XELODA [Suspect]
     Indication: BREAST CANCER
     Dosage: 3TAB TWICE PER DAY
     Route: 048
     Dates: start: 20080201

REACTIONS (4)
  - DERMATITIS EXFOLIATIVE [None]
  - DIARRHOEA [None]
  - NAIL DISORDER [None]
  - RASH MACULO-PAPULAR [None]
